FAERS Safety Report 12851171 (Version 1)
Quarter: 2016Q4

REPORT INFORMATION
  Report Type: Spontaneous
  Country: JP (occurrence: JP)
  Receive Date: 20161015
  Receipt Date: 20161015
  Transmission Date: 20170207
  Serious: Yes (Other)
  Sender: FDA-Public Use
  Company Number: JP-AMGEN-JPNSP2016125740

PATIENT
  Age: 80 Year
  Sex: Female

DRUGS (4)
  1. NESP [Suspect]
     Active Substance: DARBEPOETIN ALFA
     Indication: NEPHROGENIC ANAEMIA
     Dosage: 60 MUG, QWK
     Route: 042
  2. NESP [Suspect]
     Active Substance: DARBEPOETIN ALFA
     Dosage: 30 MUG, 2 TIMES/WK
     Route: 042
  3. NESP [Suspect]
     Active Substance: DARBEPOETIN ALFA
     Dosage: 30 MUG, Q2WK
     Route: 042
  4. NESP [Suspect]
     Active Substance: DARBEPOETIN ALFA
     Dosage: 60 MUG, QWK
     Route: 042

REACTIONS (1)
  - Aplasia pure red cell [Unknown]
